FAERS Safety Report 20454556 (Version 2)
Quarter: 2022Q1

REPORT INFORMATION
  Report Type: Spontaneous
  Country: JP (occurrence: JP)
  Receive Date: 20220210
  Receipt Date: 20220329
  Transmission Date: 20220424
  Serious: Yes (Hospitalization, Other)
  Sender: FDA-Public Use
  Company Number: JP-002147023-NVSC2022JP002042

PATIENT
  Age: 72 Year
  Sex: Male

DRUGS (4)
  1. OXALIPLATIN [Suspect]
     Active Substance: OXALIPLATIN
     Indication: Hepatic neoplasm
     Dosage: 130 MG/M^2/DAY FOR 21 DAYS
     Route: 048
  2. OXALIPLATIN [Suspect]
     Active Substance: OXALIPLATIN
     Indication: Rectal cancer stage IV
  3. CAPECITABINE [Concomitant]
     Active Substance: CAPECITABINE
     Indication: Rectal cancer stage IV
     Dosage: 1500 MG/M^2/DAY FOR 14 CONSECUTIVE DAYS
     Route: 048
  4. CAPECITABINE [Concomitant]
     Active Substance: CAPECITABINE
     Indication: Hepatic neoplasm

REACTIONS (2)
  - Splenorenal shunt [Recovered/Resolved]
  - Hyperammonaemia [Recovered/Resolved]
